FAERS Safety Report 5591255-9 (Version None)
Quarter: 2008Q1

REPORT INFORMATION
  Report Type: 
  Country: None (occurrence: None)
  Receive Date: 20080110
  Receipt Date: 20080110
  Transmission Date: 20080703
  Serious: Yes (Other)
  Sender: FDA-Public Use
  Company Number: None

PATIENT
  Age: 53 Year
  Sex: Female
  Weight: 58.9676 kg

DRUGS (1)
  1. FOSAMAX [Suspect]
     Indication: OSTEOPOROSIS
     Dosage: ONCE DAILY PO
     Route: 048
     Dates: start: 19981215, end: 19990215

REACTIONS (2)
  - GASTROINTESTINAL DISORDER [None]
  - HEART RATE IRREGULAR [None]
